FAERS Safety Report 4295027-7 (Version None)
Quarter: 2004Q1

REPORT INFORMATION
  Report Type: 
  Country: None (occurrence: None)
  Receive Date: 20040211
  Receipt Date: 20040129
  Transmission Date: 20041129
  Serious: Yes (Hospitalization)
  Sender: FDA-Public Use
  Company Number: 2004AP00285

PATIENT
  Age: 63 Year
  Sex: Male

DRUGS (2)
  1. IRESSA [Suspect]
     Indication: NON-SMALL CELL LUNG CANCER
     Dosage: 250 MG DAILY PO
     Route: 048
     Dates: start: 20040114, end: 20040119
  2. LAXATIVE [Suspect]

REACTIONS (2)
  - DIARRHOEA [None]
  - MELAENA [None]
